FAERS Safety Report 20591483 (Version 1)
Quarter: 2022Q1

REPORT INFORMATION
  Report Type: Spontaneous
  Country: AU (occurrence: AU)
  Receive Date: 20220314
  Receipt Date: 20220314
  Transmission Date: 20220424
  Serious: Yes (Death)
  Sender: FDA-Public Use
  Company Number: AU-TASMAN PHARMA, INC.-2022TSM00038

PATIENT
  Sex: Male

DRUGS (19)
  1. CLOZAPINE [Suspect]
     Active Substance: CLOZAPINE
     Dosage: 200 MG
     Dates: start: 20190506, end: 20190621
  2. CLOZAPINE [Suspect]
     Active Substance: CLOZAPINE
     Dosage: 225 MG
     Dates: start: 20190622, end: 20190703
  3. CLOZAPINE [Suspect]
     Active Substance: CLOZAPINE
     Dosage: 350 MG
     Dates: start: 20210217, end: 20210316
  4. CLOZAPINE [Suspect]
     Active Substance: CLOZAPINE
     Dosage: 25 MG
     Dates: start: 20211122, end: 20211128
  5. CLOZAPINE [Suspect]
     Active Substance: CLOZAPINE
     Dosage: 300 MG
     Dates: start: 20190704, end: 20190722
  6. CLOZAPINE [Suspect]
     Active Substance: CLOZAPINE
     Dosage: 350 MG
     Dates: start: 20210207, end: 20210216
  7. CLOZAPINE [Suspect]
     Active Substance: CLOZAPINE
     Dosage: 25 MG
     Dates: start: 20211129, end: 20211129
  8. CLOZAPINE [Suspect]
     Active Substance: CLOZAPINE
     Dosage: 12.5 MG
     Dates: start: 20211221, end: 20211227
  9. CLOZAPINE [Suspect]
     Active Substance: CLOZAPINE
     Dosage: 125 MG
     Dates: start: 20211229, end: 20211230
  10. CLOZAPINE [Suspect]
     Active Substance: CLOZAPINE
     Dosage: 150 MG
     Dates: start: 20211231, end: 20220104
  11. CLOZAPINE [Suspect]
     Active Substance: CLOZAPINE
     Dosage: 225 MG
     Dates: start: 20220105, end: 20220111
  12. CLOZAPINE [Suspect]
     Active Substance: CLOZAPINE
     Dosage: 325 MG
     Dates: start: 20220119, end: 20220124
  13. CLOZAPINE [Suspect]
     Active Substance: CLOZAPINE
     Dosage: 350 MG
     Dates: start: 20220125, end: 20220209
  14. CLOZAPINE [Suspect]
     Active Substance: CLOZAPINE
     Dosage: 350 MG
     Dates: start: 20190723, end: 20210206
  15. CLOZAPINE [Suspect]
     Active Substance: CLOZAPINE
     Dosage: 350 MG
     Dates: start: 20210317, end: 20211114
  16. CLOZAPINE [Suspect]
     Active Substance: CLOZAPINE
     Dosage: 25 MG
     Dates: start: 20211117, end: 20211121
  17. CLOZAPINE [Suspect]
     Active Substance: CLOZAPINE
     Dosage: 100 MG
     Dates: start: 20211228, end: 20211228
  18. CLOZAPINE [Suspect]
     Active Substance: CLOZAPINE
     Dosage: 275 MG
     Dates: start: 20220112, end: 20220118
  19. CLOZAPINE [Suspect]
     Active Substance: CLOZAPINE
     Dosage: 350 MG
     Dates: start: 20220210, end: 20220301

REACTIONS (2)
  - Death [Fatal]
  - Unevaluable event [Unknown]

NARRATIVE: CASE EVENT DATE: 20211114
